FAERS Safety Report 5557374-8 (Version None)
Quarter: 2007Q4

REPORT INFORMATION
  Report Type: 
  Country: None (occurrence: None)
  Receive Date: 20071214
  Receipt Date: 20071212
  Transmission Date: 20080405
  Serious: Yes (Other)
  Sender: FDA-Public Use
  Company Number: DE-SP-2007-04243

PATIENT
  Sex: Male

DRUGS (1)
  1. IMMUCYST [Suspect]
     Route: 065

REACTIONS (1)
  - GRANULOMA [None]
